FAERS Safety Report 8486437-2 (Version None)
Quarter: 2012Q3

REPORT INFORMATION
  Report Type: 
  Country: None (occurrence: None)
  Receive Date: 20120703
  Receipt Date: 20120619
  Transmission Date: 20120928
  Serious: Yes (Other)
  Sender: FDA-Public Use
  Company Number: KP-WATSON-2012-10814

PATIENT
  Age: 35 Year
  Sex: Male
  Weight: 54 kg

DRUGS (1)
  1. ALENDRONATE SODIUM [Suspect]
     Indication: OSTEOPOROSIS
     Dosage: 10 MG, DAILY
     Route: 048

REACTIONS (2)
  - SPINAL COMPRESSION FRACTURE [None]
  - FEMUR FRACTURE [None]
